FAERS Safety Report 5456631-3 (Version None)
Quarter: 2007Q3

REPORT INFORMATION
  Report Type: 
  Country: None (occurrence: None)
  Receive Date: 20070918
  Receipt Date: 20070330
  Transmission Date: 20080115
  Serious: Yes (Hospitalization)
  Sender: FDA-Public Use
  Company Number: US-ASTRAZENECA-2006UW25631

PATIENT
  Age: 14351 Day
  Sex: Female
  Weight: 114.1 kg

DRUGS (4)
  1. SEROQUEL [Suspect]
     Indication: BIPOLAR DISORDER
     Dosage: 200 MG TO 300 MG DAILY
     Route: 048
     Dates: start: 20030101, end: 20060101
  2. SEROQUEL [Suspect]
     Indication: DEPRESSION
     Dosage: 200 MG TO 300 MG DAILY
     Route: 048
     Dates: start: 20030101, end: 20060101
  3. SEROQUEL [Suspect]
     Indication: ANXIETY
     Dosage: 200 MG TO 300 MG DAILY
     Route: 048
     Dates: start: 20030101, end: 20060101
  4. DEPAKOTE [Concomitant]

REACTIONS (1)
  - DIABETES MELLITUS [None]
